FAERS Safety Report 5220032-3 (Version None)
Quarter: 2007Q1

REPORT INFORMATION
  Report Type: 
  Country: None (occurrence: None)
  Receive Date: 20070124
  Receipt Date: 20070124
  Transmission Date: 20070707
  Serious: Yes (Other)
  Sender: FDA-Public Use
  Company Number: None

PATIENT
  Age: 86 Year
  Sex: Male
  Weight: 81 kg

DRUGS (16)
  1. FENTANYL [Suspect]
  2. ACETAMINOPHEN TAB [Concomitant]
  3. NALOXONE INJ, SOLN [Concomitant]
  4. OXYCODONE TAB [Concomitant]
  5. MILK OF MAGNESIA SUSP [Concomitant]
  6. ENEMA, PHOSPHATE ENEMA [Concomitant]
  7. DOCUSATE/SENNOSIDES TAB [Concomitant]
  8. MEMANTINE TAB [Concomitant]
  9. PAROXETINE TAB [Concomitant]
  10. HYPROMELLOSE 0.4% SOLN [Concomitant]
  11. SIMVASTATIN [Concomitant]
  12. OMEPRAZOLE [Concomitant]
  13. GEMFIBROZIL TAB [Concomitant]
  14. DONEPEZIL HCL [Concomitant]
  15. LORAZEPAM [Concomitant]
  16. .. [Concomitant]

REACTIONS (1)
  - DELIRIUM [None]
